FAERS Safety Report 6015335-9 (Version None)
Quarter: 2008Q4

REPORT INFORMATION
  Report Type: 
  Country: None (occurrence: None)
  Receive Date: 20081222
  Receipt Date: 20081211
  Transmission Date: 20090506
  Serious: Yes (Hospitalization)
  Sender: FDA-Public Use
  Company Number: JP-PFIZER INC-2008098901

PATIENT

DRUGS (9)
  1. SUNITINIB MALATE [Suspect]
     Indication: COLORECTAL CANCER
     Dosage: 37.5 MG, 1X/DAY
     Route: 048
     Dates: start: 20080526, end: 20081116
  2. CAMPTOSAR [Suspect]
     Indication: COLORECTAL CANCER
     Dosage: 270 MG, 1X/DAY, EVERY 2 WEEKS
     Route: 042
     Dates: start: 20080526, end: 20081020
  3. LEUCOVORIN CALCIUM [Suspect]
     Indication: COLORECTAL CANCER
     Dosage: 300 MG, 1X/DAY, EVERY 2 WEEKS
     Route: 042
     Dates: start: 20080526
  4. FLUOROURACIL [Suspect]
     Indication: COLORECTAL CANCER
     Dosage: INFUSION 3600 MG, 1X/DAY, EVERY 2 WEEKS
     Route: 042
     Dates: start: 20080526
  5. FLUOROURACIL [Suspect]
     Dosage: BOLUS, 600 MG, 1XDAY, EVERY 2 WEEKS
     Route: 042
     Dates: start: 20080526
  6. BROTIZOLAM [Concomitant]
     Route: 048
     Dates: start: 20080508
  7. FAMOTIDINE [Concomitant]
     Route: 048
     Dates: start: 20080908
  8. MAGNESIUM OXIDE [Concomitant]
     Route: 048
     Dates: start: 20081020
  9. SENNOSIDE A+B [Concomitant]
     Route: 048
     Dates: start: 20081020

REACTIONS (3)
  - ANOREXIA [None]
  - GASTRIC DILATATION [None]
  - VOMITING [None]
